FAERS Safety Report 9482117 (Version 4)
Quarter: 2013Q4

REPORT INFORMATION
  Report Type: Spontaneous
  Country: US (occurrence: US)
  Receive Date: 20130828
  Receipt Date: 20131126
  Transmission Date: 20140711
  Serious: Yes (Other)
  Sender: FDA-Public Use
  Company Number: US-JNJFOC-20130810221

PATIENT
  Age: 66 Year
  Sex: Female
  Weight: 97.07 kg

DRUGS (8)
  1. INVOKANA [Suspect]
     Indication: TYPE 2 DIABETES MELLITUS
     Route: 048
     Dates: start: 20130801, end: 20130816
  2. LEVEMIR [Concomitant]
     Indication: DIABETES MELLITUS
  3. NOVOLOG [Concomitant]
     Indication: DIABETES MELLITUS
  4. EFFEXOR XR [Concomitant]
     Indication: DEPRESSION
  5. ZETIA [Concomitant]
     Indication: BLOOD CHOLESTEROL
  6. BUSPAR [Concomitant]
     Indication: ANXIETY
  7. OMEPRAZOLE [Concomitant]
     Indication: GASTROOESOPHAGEAL REFLUX DISEASE
  8. LOSARTAN POTASSIUM [Concomitant]
     Indication: HYPERTENSION

REACTIONS (10)
  - Cataract [Unknown]
  - Dyspnoea [Unknown]
  - Pain [Recovered/Resolved]
  - Erythema [Recovered/Resolved]
  - Pruritus [Recovered/Resolved]
  - Skin burning sensation [Recovered/Resolved]
  - Fungal infection [Not Recovered/Not Resolved]
  - Rash [Recovered/Resolved]
  - Urinary tract infection [Recovered/Resolved]
  - Drug ineffective [Unknown]
